FAERS Safety Report 4496081-X (Version None)
Quarter: 2004Q4

REPORT INFORMATION
  Report Type: 
  Country: None (occurrence: None)
  Receive Date: 20041108
  Receipt Date: 20041025
  Transmission Date: 20050328
  Serious: Yes (Disabling, Other)
  Sender: FDA-Public Use
  Company Number: GB-MERCK-0410USA03868

PATIENT
  Age: 59 Year
  Sex: Male

DRUGS (1)
  1. ZOCOR [Suspect]
     Route: 048

REACTIONS (4)
  - DIARRHOEA [None]
  - HEADACHE [None]
  - PAIN [None]
  - SOMNOLENCE [None]
